FAERS Safety Report 5343492-6 (Version None)
Quarter: 2007Q2

REPORT INFORMATION
  Report Type: 
  Country: None (occurrence: None)
  Receive Date: 20070604
  Receipt Date: 20070525
  Transmission Date: 20071010
  Serious: Yes (Other)
  Sender: FDA-Public Use
  Company Number: PHEH2007US07968

PATIENT
  Age: 48 Year

DRUGS (1)
  1. DIOVAN HCT [Suspect]
     Indication: HYPERTENSION
     Dosage: UNK, QD
     Route: 048
     Dates: start: 20050101, end: 20061201

REACTIONS (5)
  - DIZZINESS [None]
  - ELECTROCARDIOGRAM ABNORMAL [None]
  - HOT FLUSH [None]
  - HYPERTENSION [None]
  - PANIC ATTACK [None]
